FAERS Safety Report 15316686 (Version 2)
Quarter: 2018Q3

REPORT INFORMATION
  Report Type: Report from Study
  Country: KR (occurrence: KR)
  Receive Date: 20180824
  Receipt Date: 20180904
  Transmission Date: 20181010
  Serious: Yes (Hospitalization)
  Sender: FDA-Public Use
  Company Number: KR-PFIZER INC-2018333251

PATIENT
  Age: 43 Year
  Sex: Male
  Weight: 78.9 kg

DRUGS (14)
  1. FENOFIBRATE. [Suspect]
     Active Substance: FENOFIBRATE
     Indication: DYSLIPIDAEMIA
     Dosage: 160 MG, 1X/DAY
     Route: 048
     Dates: start: 20180618
  2. VALSARTAN. [Concomitant]
     Active Substance: VALSARTAN
     Indication: HYPERTENSION
     Dosage: 80 MG, 1X/DAY
     Route: 048
     Dates: start: 20180315
  3. LEVOCETIRIZINE HYDROCHLORIDE [Concomitant]
     Active Substance: LEVOCETIRIZINE HYDROCHLORIDE
     Indication: COUGH
     Dosage: 0.5 DF(TABLET), 2X/DAY
     Route: 048
     Dates: start: 20180810, end: 20180812
  4. STREPTODORNASE W/STREPTOKINASE [Concomitant]
     Indication: COUGH
     Dosage: 1 DF (TABLET), 3X/DAY
     Route: 048
     Dates: start: 20180810, end: 20180812
  5. FENOFIBRATE. [Suspect]
     Active Substance: FENOFIBRATE
     Indication: HYPERTRIGLYCERIDAEMIA
  6. HARNAL [Concomitant]
     Active Substance: TAMSULOSIN HYDROCHLORIDE
     Indication: BENIGN PROSTATIC HYPERPLASIA
     Dosage: 0.2 MG, 1X/DAY
     Route: 048
     Dates: start: 201609
  7. AVELUMAB [Suspect]
     Active Substance: AVELUMAB
     Indication: RENAL CELL CARCINOMA
     Dosage: 769 MG, EVERY 2 WEEKS
     Route: 042
     Dates: start: 20170522, end: 20180719
  8. AXITINIB [Suspect]
     Active Substance: AXITINIB
     Indication: RENAL CELL CARCINOMA
     Dosage: 2 MG, 2X/DAY, CONTINUOUS
     Route: 048
     Dates: start: 20170522, end: 20180815
  9. AMLODIPINE [Concomitant]
     Active Substance: AMLODIPINE BESYLATE
     Indication: HYPERTENSION
     Dosage: 10 MG, 1X/DAY
     Route: 048
     Dates: start: 20170619
  10. PHENCETA [Concomitant]
     Indication: COUGH
     Dosage: 1 DF (TABLET), 3X/DAY
     Route: 048
     Dates: start: 20180810, end: 20180812
  11. CEFACLOR. [Concomitant]
     Active Substance: CEFACLOR
     Indication: COUGH
     Dosage: 1 DF, 2X/DAY
     Route: 048
     Dates: start: 20180810, end: 20180812
  12. LEVOTHYROXINE. [Concomitant]
     Active Substance: LEVOTHYROXINE
     Indication: HYPOTHYROIDISM
     Dosage: 150 UG, 1X/DAY
     Route: 048
     Dates: start: 20171026
  13. CIALIS [Concomitant]
     Active Substance: TADALAFIL
     Indication: BENIGN PROSTATIC HYPERPLASIA
     Dosage: 5 MG, 1X/DAY
     Route: 048
     Dates: start: 201609
  14. RANITIDINE HYDROCHLORIDE. [Concomitant]
     Active Substance: RANITIDINE HYDROCHLORIDE
     Indication: COUGH
     Dosage: 75 MG, 2X/DAY
     Route: 048
     Dates: start: 20180810, end: 20180812

REACTIONS (1)
  - Hepatitis acute [Recovering/Resolving]

NARRATIVE: CASE EVENT DATE: 20180816
